FAERS Safety Report 17258589 (Version 1)
Quarter: 2020Q1

REPORT INFORMATION
  Report Type: Spontaneous
  Country: CA (occurrence: CA)
  Receive Date: 20200110
  Receipt Date: 20200110
  Transmission Date: 20200409
  Serious: Yes (Other)
  Sender: FDA-Public Use
  Company Number: CA-009507513-2001CAN001096

PATIENT
  Age: 55 Year
  Sex: Female

DRUGS (3)
  1. DECITABINE. [Concomitant]
     Active Substance: DECITABINE
     Dosage: UNK
  2. VENETOCLAX. [Concomitant]
     Active Substance: VENETOCLAX
     Dosage: UNK
  3. POSANOL [Suspect]
     Active Substance: POSACONAZOLE
     Dosage: UNK

REACTIONS (4)
  - Scedosporium infection [Unknown]
  - Pneumonia fungal [Unknown]
  - Fungal sepsis [Unknown]
  - Drug ineffective [Unknown]
